FAERS Safety Report 7261366 (Version 19)
Quarter: 2013Q3

REPORT INFORMATION
  Report Type: Spontaneous
  Country: GB (occurrence: GB)
  Receive Date: 20100129
  Receipt Date: 20130712
  Transmission Date: 20140515
  Serious: Yes (Hospitalization, Disabling, Other)
  Sender: FDA-Public Use
  Company Number: PHHY2009GB57407

PATIENT
  Age: 41 Year
  Sex: Male

DRUGS (22)
  1. CLOZARIL [Suspect]
     Indication: SCHIZOPHRENIA
     Dosage: 300 MG, UNK
     Route: 048
     Dates: start: 20051201, end: 201009
  2. CLOZARIL [Suspect]
     Dosage: UNK
     Dates: start: 20101110
  3. CLOZARIL [Suspect]
     Dosage: 300 MG/DAY
     Route: 048
     Dates: start: 20110727
  4. CLOZARIL [Suspect]
     Dosage: UNK
     Dates: start: 20120718
  5. CLOZARIL [Suspect]
     Dosage: UNK
     Route: 048
     Dates: start: 20121001
  6. AMISULPRIDE [Suspect]
     Indication: SCHIZOPHRENIA
     Dosage: 200 MG, UNK
     Route: 048
  7. LAMOTRIGINE [Concomitant]
     Indication: EPILEPSY
     Dosage: 200 MG, BID
     Route: 048
  8. EPILIM [Concomitant]
     Indication: EPILEPSY
     Dosage: 500 MG, BID
     Route: 048
  9. THYROXINE [Concomitant]
     Indication: HYPOTHYROIDISM
     Dosage: 225 UG, QD
  10. AMITRIPTYLINE [Concomitant]
     Indication: HEADACHE
     Dosage: 20 MG, UNK
     Route: 048
  11. PROCYCLIDINE [Concomitant]
     Indication: HEADACHE
     Dosage: 5 MG, TID
     Route: 048
  12. KEPPRA [Concomitant]
     Indication: EPILEPSY
     Dosage: 750 MG, BID
  13. OMEPRAZOLE [Concomitant]
     Indication: GASTROINTESTINAL DISORDER
     Dosage: 20 MG, DAILY
  14. OMEPRAZOLE [Concomitant]
     Indication: GASTROINTESTINAL DISORDER
  15. LEVOTHYROXINE [Concomitant]
     Indication: THYROID HORMONE REPLACEMENT THERAPY
     Dosage: 225 UG, DAILY
     Route: 048
  16. LEVOTHYROXINE [Concomitant]
     Indication: THYROID HORMONE REPLACEMENT THERAPY
  17. SIMVASTATIN [Concomitant]
     Indication: LIPIDS ABNORMAL
     Dosage: 40 MG/DAY
     Route: 048
  18. SIMVASTATIN [Concomitant]
     Indication: LIPIDS ABNORMAL
  19. LEVETIRACETAM [Concomitant]
     Dosage: 750 MG, BID
     Route: 048
  20. VALPROATE SODIUM [Concomitant]
     Indication: EPILEPSY
     Dosage: 500 MG, BID
     Route: 048
  21. HYOSCINE [Concomitant]
     Dosage: 300 UG, BID
  22. ARIPIPRAZOLE [Concomitant]
     Dosage: 10 MG/DAY

REACTIONS (4)
  - Schizophrenia [Unknown]
  - Chronic lymphocytic leukaemia [Recovering/Resolving]
  - White blood cell count increased [Not Recovered/Not Resolved]
  - Lymphocyte count increased [Recovering/Resolving]
